FAERS Safety Report 15279522 (Version 2)
Quarter: 2018Q3

REPORT INFORMATION
  Report Type: Spontaneous
  Country: US (occurrence: US)
  Receive Date: 20180815
  Receipt Date: 20180822
  Transmission Date: 20181010
  Serious: No
  Sender: FDA-Public Use
  Company Number: US-PFIZER INC-2017180257

PATIENT
  Age: 3 Year
  Sex: Male

DRUGS (11)
  1. GENOTROPIN MQ [Suspect]
     Active Substance: SOMATROPIN
     Indication: GROWTH HORMONE DEFICIENCY
     Dosage: 0.6 MG, DAILY
     Dates: start: 201604
  2. CORTEF [Concomitant]
     Active Substance: HYDROCORTISONE
     Indication: LOSS OF CONSCIOUSNESS
     Dosage: 1 ML, AS NEEDED [INJECT 1 ML INTO THE MUSCLE AS NEEDED FOR OTHER (USE IF UNCONSCIOUS OR VOMITING)]
     Route: 030
     Dates: start: 20160412
  3. VITAMIN B12 [Concomitant]
     Active Substance: CYANOCOBALAMIN
     Indication: ASTHENIA
     Dosage: 1 ML, MONTHLY
     Dates: start: 20160412
  4. CORTEF [Concomitant]
     Active Substance: HYDROCORTISONE
     Indication: VOMITING
  5. CARNITOR [Concomitant]
     Active Substance: LEVOCARNITINE
     Dosage: 9 ML, DAILY
     Route: 048
     Dates: start: 20170410
  6. GENOTROPIN MQ [Suspect]
     Active Substance: SOMATROPIN
     Dosage: 0.6 MG, DAILY [INJECT 0.6 MG INTO THE SKIN NIGHTLY AT BEDTIME]
     Dates: start: 20170215
  7. CARNITOR [Concomitant]
     Active Substance: LEVOCARNITINE
     Dosage: 7.5 ML, DAILY
     Route: 048
     Dates: start: 20160412
  8. CHILDRENS TYLENOL [Concomitant]
     Active Substance: ACETAMINOPHEN
     Dosage: UNK
     Route: 048
  9. CHILDRENS MOTRIN [Concomitant]
     Active Substance: IBUPROFEN
     Dosage: UNK
     Route: 048
  10. CORTEF [Concomitant]
     Active Substance: HYDROCORTISONE
     Indication: PYREXIA
     Dosage: 10 MG, AS NEEDED [TAKE 1 TABLET BY MOUTH 3 TIMES DAILY AS NEEDED FOR OTHER (USE IF SICK WITH FEVER)]
     Route: 048
     Dates: start: 20160412
  11. MCT OIL [Concomitant]
     Dosage: UNK, DAILY  [INCREASE MCT OIL FROM 1 TO 2 TEASPOONS DAILY]

REACTIONS (8)
  - Constipation [Unknown]
  - Blood creatinine decreased [Unknown]
  - Blood iron decreased [Unknown]
  - Fall [Unknown]
  - Blood urea increased [Unknown]
  - Aspartate aminotransferase increased [Unknown]
  - Vitamin B12 increased [Unknown]
  - Alanine aminotransferase increased [Unknown]
